FAERS Safety Report 21315662 (Version 1)
Quarter: 2022Q3

REPORT INFORMATION
  Report Type: Spontaneous
  Country: US (occurrence: US)
  Receive Date: 20220909
  Receipt Date: 20220909
  Transmission Date: 20221027
  Serious: Yes (Hospitalization, Other)
  Sender: FDA-Public Use
  Company Number: US-TEVA-2022-US-2072821

PATIENT
  Sex: Male

DRUGS (2)
  1. OXYCODONE [Suspect]
     Active Substance: OXYCODONE
     Indication: Product used for unknown indication
     Route: 064
  2. BUPRENORPHINE [Suspect]
     Active Substance: BUPRENORPHINE
     Indication: Product used for unknown indication
     Route: 064

REACTIONS (21)
  - Drug withdrawal syndrome neonatal [Unknown]
  - Drug dependence [Unknown]
  - Pain [Unknown]
  - Seizure [Unknown]
  - Disturbance in attention [Not Recovered/Not Resolved]
  - Affective disorder [Not Recovered/Not Resolved]
  - Cognitive disorder [Not Recovered/Not Resolved]
  - Tremor [Unknown]
  - Sneezing [Unknown]
  - Diarrhoea [Unknown]
  - Neonatal disorder [Unknown]
  - Poor feeding infant [Unknown]
  - Skin disorder [Unknown]
  - Insomnia [Unknown]
  - Agitation neonatal [Unknown]
  - Learning disability [Unknown]
  - Developmental delay [Unknown]
  - Sensory disturbance [Unknown]
  - Thinking abnormal [Unknown]
  - Emotional disorder of childhood [Unknown]
  - Foetal exposure during pregnancy [Unknown]

NARRATIVE: CASE EVENT DATE: 20180101
